FAERS Safety Report 24072170 (Version 1)
Quarter: 2024Q3

REPORT INFORMATION
  Report Type: Spontaneous
  Country: US (occurrence: None)
  Receive Date: 20240709
  Receipt Date: 20240709
  Transmission Date: 20241017
  Serious: Yes (Other)
  Sender: Public
  Company Number: None

PATIENT
  Age: 60 Year
  Sex: Female

DRUGS (1)
  1. DUPIXENT [Suspect]
     Active Substance: DUPILUMAB
     Indication: Dermatitis atopic
     Dosage: 300 MG EVERY OTHER WEEK SUBCUTANEOUS?
     Route: 058
     Dates: start: 20190101, end: 20240426

REACTIONS (12)
  - Injection site rash [None]
  - Injection site pain [None]
  - Blood pressure decreased [None]
  - Cellulitis [None]
  - Cough [None]
  - Sneezing [None]
  - Dyspnoea [None]
  - Joint swelling [None]
  - Pain [None]
  - Sputum discoloured [None]
  - Pyrexia [None]
  - Therapy interrupted [None]

NARRATIVE: CASE EVENT DATE: 20240415
